FAERS Safety Report 5295391-6 (Version None)
Quarter: 2007Q2

REPORT INFORMATION
  Report Type: 
  Country: None (occurrence: None)
  Receive Date: 20070406
  Receipt Date: 20070305
  Transmission Date: 20071010
  Serious: Yes (Other)
  Sender: FDA-Public Use
  Company Number: 2007US000333

PATIENT
  Age: 32 Year
  Sex: Female

DRUGS (6)
  1. PROTOPIC [Suspect]
     Indication: PSORIASIS
     Dosage: SEE IMAGE
     Route: 061
     Dates: start: 20030127
  2. PROTOPIC [Suspect]
     Indication: PSORIASIS
     Dosage: SEE IMAGE
     Route: 061
     Dates: start: 20030303
  3. PROTOPIC [Suspect]
     Indication: PSORIASIS
     Dosage: SEE IMAGE
     Route: 061
     Dates: start: 20030505
  4. PROTOPIC [Suspect]
     Indication: PSORIASIS
     Dosage: SEE IMAGE
     Route: 061
     Dates: start: 20040426
  5. PROTOPIC [Suspect]
     Indication: PSORIASIS
     Dosage: SEE IMAGE
     Route: 061
     Dates: start: 20041122
  6. PROTOPIC [Suspect]
     Indication: PSORIASIS
     Dosage: SEE IMAGE
     Route: 061
     Dates: start: 20060130

REACTIONS (1)
  - HODGKIN'S DISEASE [None]
